FAERS Safety Report 8495004-6 (Version None)
Quarter: 2012Q3

REPORT INFORMATION
  Report Type: 
  Country: None (occurrence: None)
  Receive Date: 20120709
  Receipt Date: 20120629
  Transmission Date: 20120928
  Serious: Yes (Death)
  Sender: FDA-Public Use
  Company Number: GB-JNJFOC-20120701182

PATIENT
  Age: 67 Year
  Sex: Male
  Weight: 85 kg

DRUGS (2)
  1. METHOTREXATE [Concomitant]
  2. REMICADE [Suspect]
     Indication: RHEUMATOID ARTHRITIS
     Route: 042
     Dates: start: 20000404

REACTIONS (5)
  - RENAL FAILURE CHRONIC [None]
  - BRONCHOPNEUMONIA [None]
  - DIABETES MELLITUS [None]
  - SEPSIS [None]
  - AMYLOIDOSIS [None]
